FAERS Safety Report 6167208-9 (Version None)
Quarter: 2009Q2

REPORT INFORMATION
  Report Type: 
  Country: None (occurrence: None)
  Receive Date: 20090424
  Receipt Date: 20090410
  Transmission Date: 20091009
  Serious: Yes (Other)
  Sender: FDA-Public Use
  Company Number: US-PFIZER INC-2009197609

PATIENT
  Sex: Female
  Weight: 81.633 kg

DRUGS (1)
  1. LYRICA [Suspect]
     Indication: NERVE COMPRESSION
     Dosage: 50 MG, 3X/DAY
     Dates: start: 20090406, end: 20090410

REACTIONS (2)
  - EYE SWELLING [None]
  - HYPERSENSITIVITY [None]
